FAERS Safety Report 7101575-4 (Version None)
Quarter: 2010Q4

REPORT INFORMATION
  Report Type: 
  Country: None (occurrence: None)
  Receive Date: 20101115
  Receipt Date: 20101108
  Transmission Date: 20110411
  Serious: Yes (Hospitalization)
  Sender: FDA-Public Use
  Company Number: VE-PFIZER INC-2010143852

PATIENT
  Age: 62 Year
  Sex: Female
  Weight: 52 kg

DRUGS (7)
  1. LIPITOR [Suspect]
     Indication: HYPERCHOLESTEROLAEMIA
     Dosage: 20 MG, 1X/DAY
     Route: 048
     Dates: start: 20101001, end: 20101001
  2. NEXIUM [Concomitant]
     Indication: ULCER
     Dosage: 10 MG, 1X/DAY
     Route: 048
     Dates: start: 20101019
  3. DOMPERIDONE [Concomitant]
     Indication: ULCER
     Dosage: 10 MG, 3X/DAY
     Route: 048
     Dates: start: 20101019
  4. BI-EUGLUCON M [Concomitant]
     Indication: DIABETES MELLITUS
     Dosage: UNK
     Route: 048
     Dates: start: 20000101
  5. HYDROCHLOROTHIAZIDE [Concomitant]
     Indication: HYPERTENSION
     Dosage: 125 MG, 1X/DAY
     Route: 048
     Dates: start: 20070101
  6. COZAAR [Concomitant]
     Indication: HYPERTENSION
     Dosage: 100 MG, 1X/DAY
     Route: 048
     Dates: start: 20090101
  7. ZANIDIP [Concomitant]
     Indication: HYPERTENSION
     Dosage: 10 MG, 1X/DAY
     Route: 048
     Dates: start: 20090101

REACTIONS (4)
  - DIZZINESS [None]
  - HYPOAESTHESIA [None]
  - TINNITUS [None]
  - VOMITING [None]
